FAERS Safety Report 18550696 (Version 8)
Quarter: 2025Q4

REPORT INFORMATION
  Report Type: Report from Study
  Country: US (occurrence: US)
  Receive Date: 20201126
  Receipt Date: 20251221
  Transmission Date: 20260118
  Serious: Yes (Hospitalization, Other)
  Sender: TAKEDA
  Company Number: US-TAKEDA-2020TUS053131

PATIENT
  Age: 67 Year
  Sex: Female

DRUGS (3)
  1. HUMAN IMMUNOGLOBULIN G [Suspect]
     Active Substance: HUMAN IMMUNOGLOBULIN G
     Indication: Primary immunodeficiency syndrome
     Dosage: 5 GRAM, 1/WEEK
  2. HUMAN IMMUNOGLOBULIN G [Suspect]
     Active Substance: HUMAN IMMUNOGLOBULIN G
     Dosage: 5 GRAM
  3. HUMAN IMMUNOGLOBULIN G [Suspect]
     Active Substance: HUMAN IMMUNOGLOBULIN G
     Dosage: UNK

REACTIONS (13)
  - Cataract [Unknown]
  - Arthropathy [Unknown]
  - Pain [Unknown]
  - COVID-19 [Unknown]
  - Illness [Unknown]
  - Blood immunoglobulin G decreased [Unknown]
  - Sinus disorder [Unknown]
  - Multiple allergies [Unknown]
  - Gastrointestinal disorder [Unknown]
  - Asthma [Unknown]
  - Injection site scar [Unknown]
  - Poor venous access [Unknown]
  - Malaise [Unknown]

NARRATIVE: CASE EVENT DATE: 20210101
